FAERS Safety Report 5215297-8 (Version None)
Quarter: 2007Q1

REPORT INFORMATION
  Report Type: 
  Country: None (occurrence: None)
  Receive Date: 20061122
  Receipt Date: 20060419
  Transmission Date: 20070707
  Serious: Yes (Other)
  Sender: FDA-Public Use
  Company Number: HQWYE883320APR06

PATIENT
  Age: 69 Year
  Sex: Female
  Weight: 72.64 kg

DRUGS (1)
  1. PREMARIN [Suspect]
     Dosage: 0.625 MG /SEVERAL YEARS

REACTIONS (1)
  - ENDOMETRIAL CANCER [None]
